FAERS Safety Report 6692354-0 (Version None)
Quarter: 2010Q2

REPORT INFORMATION
  Report Type: 
  Country: None (occurrence: None)
  Receive Date: 20100422
  Receipt Date: 20100419
  Transmission Date: 20101027
  Serious: Yes (Death)
  Sender: FDA-Public Use
  Company Number: US-SANOFI-AVENTIS-2010SA009839

PATIENT
  Age: 80 Year
  Sex: Female

DRUGS (13)
  1. PLAVIX [Suspect]
     Route: 048
     Dates: start: 20071127
  2. PLAVIX [Suspect]
     Route: 048
     Dates: start: 20071127
  3. CARDIZEM [Concomitant]
  4. MULTI-VITAMINS [Concomitant]
  5. LISINOPRIL [Concomitant]
  6. SODIUM BICARBONATE [Concomitant]
  7. METOPROLOL TARTRATE [Concomitant]
  8. EFFEXOR [Concomitant]
  9. CALTRATE [Concomitant]
  10. RENAGEL [Concomitant]
  11. ATORVASTATIN [Concomitant]
  12. ADVAIR DISKUS 100/50 [Concomitant]
  13. ALBUTEROL [Concomitant]

REACTIONS (1)
  - DEATH [None]
